FAERS Safety Report 9319697 (Version 1)
Quarter: 2013Q2

REPORT INFORMATION
  Report Type: Spontaneous
  Country: US (occurrence: None)
  Receive Date: 20130529
  Receipt Date: 20130529
  Transmission Date: 20140414
  Serious: Yes (Hospitalization)
  Sender: FDA-Public Use
  Company Number: None

PATIENT
  Age: 93 Year
  Sex: Male

DRUGS (1)
  1. LEVOFLOXACIN [Suspect]
     Dosage: 3 TABLETS ONCE DAILY PO
     Route: 048

REACTIONS (4)
  - Pain in extremity [None]
  - Dysstasia [None]
  - Tendonitis [None]
  - Wheelchair user [None]
